FAERS Safety Report 16739388 (Version 3)
Quarter: 2021Q1

REPORT INFORMATION
  Report Type: Spontaneous
  Country: US (occurrence: US)
  Receive Date: 20190826
  Receipt Date: 20210323
  Transmission Date: 20210419
  Serious: Yes (Other)
  Sender: FDA-Public Use
  Company Number: US-DRREDDYS-USA/USA/19/0113601

PATIENT
  Age: 48 Year
  Sex: Male

DRUGS (1)
  1. HEPARIN SODIUM. [Suspect]
     Active Substance: HEPARIN SODIUM
     Indication: PRODUCT USED FOR UNKNOWN INDICATION
     Dosage: AT A DOSE OF 30 NG/KG/MIN PERI?PROCEDURAL HEPARIN UTILIZATION

REACTIONS (2)
  - Deep vein thrombosis [Recovering/Resolving]
  - Heparin-induced thrombocytopenia [Recovering/Resolving]
